FAERS Safety Report 24030453 (Version 1)
Quarter: 2024Q2

REPORT INFORMATION
  Report Type: Spontaneous
  Country: US (occurrence: US)
  Receive Date: 20240628
  Receipt Date: 20240628
  Transmission Date: 20240716
  Serious: Yes (Death, Life-Threatening, Hospitalization, Other)
  Sender: FDA-Public Use
  Company Number: None

PATIENT
  Age: 27 Year
  Sex: Female

DRUGS (3)
  1. CARVEDILOL [Suspect]
     Active Substance: CARVEDILOL
     Indication: Product used for unknown indication
     Dosage: MULTIPLE EMPTY PILL BOTTLES
  2. AMLODIPINE [Suspect]
     Active Substance: AMLODIPINE BESYLATE
     Indication: Product used for unknown indication
     Dosage: MULTIPLE EMPTY PILL BOTTLES
  3. DIPHENHYDRAMINE [Suspect]
     Active Substance: DIPHENHYDRAMINE
     Indication: Product used for unknown indication
     Dosage: MULTIPLE EMPTY PILL BOTTLES

REACTIONS (10)
  - Lethargy [Fatal]
  - Shock [Fatal]
  - Loss of consciousness [Fatal]
  - Lung infiltration [Fatal]
  - Bradycardia [Fatal]
  - Aspiration [Fatal]
  - Hypotension [Fatal]
  - Hypoxia [Fatal]
  - White blood cell count increased [Fatal]
  - Overdose [Fatal]
